FAERS Safety Report 17913118 (Version 1)
Quarter: 2020Q2

REPORT INFORMATION
  Report Type: Report from Study
  Country: US (occurrence: US)
  Receive Date: 20200618
  Receipt Date: 20200618
  Transmission Date: 20200714
  Serious: Yes (Death)
  Sender: FDA-Public Use
  Company Number: US-PFIZER INC-2020234523

PATIENT

DRUGS (3)
  1. CYCLOPHOSPHAMIDE. [Suspect]
     Active Substance: CYCLOPHOSPHAMIDE
     Indication: NON-HODGKIN^S LYMPHOMA
     Dosage: 200 MG/M2, CYCLIC PER DAY CONTINUOUS INTRAVENOUS INFUSION FOR 4 DAYS (96 HOURS) EVERY 3 WEEKS
     Route: 042
  2. ETOPOSIDE. [Suspect]
     Active Substance: ETOPOSIDE
     Indication: NON-HODGKIN^S LYMPHOMA
     Dosage: 60 MG/M2, CYCLIC PER DAY CONTINUOUS INTRAVENOUS INFUSION FOR 4 DAYS (96 HOURS) EVERY 3 WEEKS
     Route: 042
  3. DOXORUBICIN HCL [Suspect]
     Active Substance: DOXORUBICIN HYDROCHLORIDE
     Indication: NON-HODGKIN^S LYMPHOMA
     Dosage: 12.5 MG/M2, CYCLIC PER DAY CONTINUOUS INTRAVENOUS INFUSION FOR 4 DAYS (96 HOURS) EVERY 3 WEEKS
     Route: 042

REACTIONS (1)
  - Mycobacterium kansasii infection [Fatal]
